FAERS Safety Report 18344854 (Version 1)
Quarter: 2020Q4

REPORT INFORMATION
  Report Type: Spontaneous
  Country: ES (occurrence: ES)
  Receive Date: 20201005
  Receipt Date: 20201005
  Transmission Date: 20210114
  Serious: Yes (Other)
  Sender: FDA-Public Use
  Company Number: ES-US-PROVELL PHARMACEUTICALS LLC-9188200

PATIENT
  Age: 64 Year
  Sex: Female

DRUGS (4)
  1. EUTHYROX [Suspect]
     Active Substance: LEVOTHYROXINE SODIUM
     Dosage: OLD FORMULATION
  2. EUTHYROX [Suspect]
     Active Substance: LEVOTHYROXINE SODIUM
     Dosage: OLD FORMULATION
     Dates: end: 20200727
  3. EUTHYROX [Suspect]
     Active Substance: LEVOTHYROXINE SODIUM
     Dosage: NEW FORMULATION
     Dates: start: 20200727, end: 202009
  4. EUTHYROX [Suspect]
     Active Substance: LEVOTHYROXINE SODIUM
     Indication: HYPOTHYROIDISM
     Dosage: OLD FORMULATION
     Dates: start: 2011

REACTIONS (16)
  - Pyrexia [Unknown]
  - Infection parasitic [Unknown]
  - Systemic lupus erythematosus [Unknown]
  - Oedema peripheral [Not Recovered/Not Resolved]
  - Rash macular [Unknown]
  - Lymphadenopathy [Recovered/Resolved]
  - Joint swelling [Unknown]
  - Rash [Recovered/Resolved]
  - Vitiligo [Unknown]
  - Muscle disorder [Unknown]
  - Fatigue [Unknown]
  - Macule [Unknown]
  - Immunology test abnormal [Unknown]
  - Oedema [Unknown]
  - Erythema [Unknown]
  - Eosinophilia [Unknown]

NARRATIVE: CASE EVENT DATE: 2011
